FAERS Safety Report 6609749-3 (Version None)
Quarter: 2010Q1

REPORT INFORMATION
  Report Type: 
  Country: None (occurrence: None)
  Receive Date: 20100302
  Receipt Date: 20100222
  Transmission Date: 20100710
  Serious: Yes (Hospitalization)
  Sender: FDA-Public Use
  Company Number: US-ASTRAZENECA-2010SE07856

PATIENT
  Sex: Female

DRUGS (6)
  1. SYMBICORT [Suspect]
     Indication: ASTHMA
     Dosage: 160/4.5 UG 4 PUFFS TWO TIMES DAILY
     Route: 055
     Dates: start: 20100101
  2. SYMBICORT [Suspect]
     Indication: CHRONIC OBSTRUCTIVE PULMONARY DISEASE
     Dosage: 160/4.5 UG 4 PUFFS TWO TIMES DAILY
     Route: 055
     Dates: start: 20100101
  3. INSULIN [Concomitant]
     Indication: DIABETES MELLITUS
  4. ALBUTEROL [Concomitant]
     Indication: PNEUMONIA
  5. LEVOTHYROXINE [Concomitant]
     Indication: HYPOTHYROIDISM
  6. ANTIBIOTICS [Concomitant]
     Indication: PNEUMONIA

REACTIONS (5)
  - DYSGEUSIA [None]
  - GLOSSITIS [None]
  - GLOSSODYNIA [None]
  - PARAESTHESIA ORAL [None]
  - PNEUMONIA [None]
